FAERS Safety Report 6376769-6 (Version None)
Quarter: 2009Q3

REPORT INFORMATION
  Report Type: 
  Country: None (occurrence: None)
  Receive Date: 20090924
  Receipt Date: 20090924
  Transmission Date: 20100115
  Serious: Yes (Other)
  Sender: FDA-Public Use
  Company Number: None

PATIENT
  Age: 39 Year
  Sex: Male
  Weight: 95 kg

DRUGS (1)
  1. SERTRALINE HCL [Suspect]
     Dosage: 50 MG 1 A DAY
     Dates: start: 20020101, end: 20090101

REACTIONS (2)
  - DEHYDRATION [None]
  - DRUG INTERACTION [None]
